FAERS Safety Report 8869845 (Version 1)
Quarter: 2012Q4

REPORT INFORMATION
  Report Type: 
  Country: US (occurrence: US)
  Receive Date: 20121028
  Receipt Date: 20121028
  Transmission Date: 20130627
  Serious: Yes (Other)
  Sender: FDA-Public Use
  Company Number: US-JNJFOC-20121008547

PATIENT
  Sex: Female
  Weight: 49.9 kg

DRUGS (4)
  1. DITROPAN XL [Suspect]
     Indication: URINARY INCONTINENCE
     Route: 048
     Dates: start: 1997
  2. DITROPAN XL [Suspect]
     Indication: URINARY INCONTINENCE
     Route: 048
     Dates: start: 1997
  3. DITROPAN XL [Suspect]
     Indication: URINARY INCONTINENCE
     Route: 048
     Dates: start: 2012
  4. LOMOTIL [Concomitant]
     Indication: FAECAL INCONTINENCE
     Route: 048
     Dates: start: 1982

REACTIONS (3)
  - Coeliac disease [Not Recovered/Not Resolved]
  - Intentional drug misuse [Unknown]
  - Drug ineffective [Recovered/Resolved]
